FAERS Safety Report 5011193-X (Version None)
Quarter: 2006Q2

REPORT INFORMATION
  Report Type: 
  Country: None (occurrence: None)
  Receive Date: 20060523
  Receipt Date: 20060523
  Transmission Date: 20061013
  Serious: Yes (Hospitalization)
  Sender: FDA-Public Use
  Company Number: None

PATIENT
  Age: 63 Year
  Sex: Female

DRUGS (3)
  1. HEPARIN [Suspect]
     Indication: STENT PLACEMENT
     Dates: start: 20050105, end: 20050106
  2. ASPIRIN [Suspect]
  3. CLOPIDOGREL [Suspect]

REACTIONS (3)
  - PERIRENAL HAEMATOMA [None]
  - POST PROCEDURAL HAEMORRHAGE [None]
  - RETROPERITONEAL HAEMATOMA [None]
